FAERS Safety Report 13676768 (Version 2)
Quarter: 2017Q3

REPORT INFORMATION
  Report Type: Spontaneous
  Country: JP (occurrence: JP)
  Receive Date: 20170622
  Receipt Date: 20170914
  Transmission Date: 20171127
  Serious: Yes (Hospitalization)
  Sender: FDA-Public Use
  Company Number: JP-AMGEN-JPNSP2017094935

PATIENT
  Age: 66 Year
  Sex: Male
  Weight: 51 kg

DRUGS (2)
  1. PANITUMUMAB [Suspect]
     Active Substance: PANITUMUMAB
     Dosage: 300 MG, Q2WEEKS
     Route: 041
     Dates: start: 20161208, end: 20170525
  2. PANITUMUMAB [Suspect]
     Active Substance: PANITUMUMAB
     Indication: METASTASES TO LIVER
     Dosage: 288 MG, Q2WEEKS
     Route: 041
     Dates: start: 20160728, end: 20161110

REACTIONS (3)
  - Hypomagnesaemia [Recovered/Resolved]
  - Malaise [Unknown]
  - Hypocalcaemia [Recovered/Resolved]

NARRATIVE: CASE EVENT DATE: 20170622
